FAERS Safety Report 7865734-5 (Version None)
Quarter: 2011Q4

REPORT INFORMATION
  Report Type: 
  Country: None (occurrence: None)
  Receive Date: 20111028
  Receipt Date: 20110215
  Transmission Date: 20120403
  Serious: No
  Sender: FDA-Public Use
  Company Number: US-GLAXOSMITHKLINE-A0913792A

PATIENT
  Age: 80 Year
  Sex: Female

DRUGS (7)
  1. ZYRTEC [Concomitant]
  2. VENTOLIN [Concomitant]
  3. SYNTHROID [Concomitant]
  4. FISH OIL [Concomitant]
  5. EVISTA [Concomitant]
  6. ADVAIR DISKUS 100/50 [Suspect]
     Indication: DYSPNOEA
     Dosage: 1PUFF TWICE PER DAY
     Route: 055
     Dates: start: 20110105, end: 20110107
  7. ALPRAZOLAM [Concomitant]

REACTIONS (8)
  - OEDEMA MOUTH [None]
  - NAUSEA [None]
  - PAIN [None]
  - BACK PAIN [None]
  - EATING DISORDER [None]
  - PYREXIA [None]
  - LIP SWELLING [None]
  - CHEST PAIN [None]
